FAERS Safety Report 10956119 (Version 1)
Quarter: 2015Q1

REPORT INFORMATION
  Report Type: Spontaneous
  Country: CH (occurrence: None)
  Receive Date: 20150320
  Receipt Date: 20150320
  Transmission Date: 20150721
  Serious: Yes (Hospitalization)
  Sender: FDA-Public Use
  Company Number: GAM-080-15-CH

PATIENT
  Age: 61 Year
  Sex: Female

DRUGS (15)
  1. METHOTREXATE [Suspect]
     Active Substance: METHOTREXATE
     Indication: SYSTEMIC LUPUS ERYTHEMATOSUS
     Dates: start: 200809, end: 201502
  2. TORASEMIDE [Concomitant]
     Active Substance: TORSEMIDE
  3. DARBEPOETIN [Concomitant]
     Active Substance: DARBEPOETIN ALFA
  4. CALCIUM [Concomitant]
     Active Substance: CALCIUM
  5. METOPROLOL [Concomitant]
     Active Substance: METOPROLOL
  6. LEVETIRACETAM. [Concomitant]
     Active Substance: LEVETIRACETAM
  7. OCTAGAM IMMUNE GLOBULIN (HUMAN) [Suspect]
     Active Substance: HUMAN IMMUNOGLOBULIN G
     Indication: SYSTEMIC LUPUS ERYTHEMATOSUS
     Route: 042
     Dates: start: 20130722
  8. RIVAROXABAN [Concomitant]
     Active Substance: RIVAROXABAN
  9. VITAMIN D [Concomitant]
     Active Substance: CHOLECALCIFEROL
  10. HYDROXYCHLOROQUINE [Concomitant]
     Active Substance: HYDROXYCHLOROQUINE
  11. PREDNISOLONE. [Concomitant]
     Active Substance: PREDNISOLONE
  12. ALENDRONATE [Concomitant]
     Active Substance: ALENDRONATE SODIUM
  13. FOLIC ACID. [Concomitant]
     Active Substance: FOLIC ACID
  14. ESOMEPRAZOLE [Concomitant]
     Active Substance: ESOMEPRAZOLE
  15. CYCLOPHOSPHAMIDE. [Concomitant]
     Active Substance: CYCLOPHOSPHAMIDE

REACTIONS (2)
  - Anaemia [None]
  - Erythropoiesis abnormal [None]

NARRATIVE: CASE EVENT DATE: 201502
